FAERS Safety Report 14546742 (Version 1)
Quarter: 2018Q1

REPORT INFORMATION
  Report Type: Spontaneous
  Country: ZA (occurrence: ZA)
  Receive Date: 20180219
  Receipt Date: 20180219
  Transmission Date: 20180509
  Serious: Yes (Hospitalization)
  Sender: FDA-Public Use
  Company Number: ZA-MYLANLABS-2018M1011974

PATIENT
  Age: 73 Year
  Sex: Male

DRUGS (5)
  1. MYLAN FUROSEMIDE 40 [Suspect]
     Active Substance: FUROSEMIDE
     Indication: DIURETIC THERAPY
     Dosage: 40 MG, UNK
     Route: 048
     Dates: start: 201710, end: 201710
  2. DUOVENT [Concomitant]
     Active Substance: FENOTEROL HYDROBROMIDE
     Indication: EMPHYSEMA
     Dosage: 50/20MCG
     Route: 048
  3. BE-TABS PREDNISONE [Concomitant]
     Active Substance: PREDNISONE
     Indication: AUTOIMMUNE DISORDER
     Dosage: 5 MG, UNK
     Route: 048
     Dates: start: 201710
  4. UROMAX                             /00538902/ [Concomitant]
     Active Substance: OXYBUTYNIN CHLORIDE
     Indication: BENIGN PROSTATIC HYPERPLASIA
     Dosage: 0.4 MG, UNK
     Route: 048
  5. TOPRAZ                             /01263204/ [Concomitant]
     Active Substance: PANTOPRAZOLE SODIUM
     Indication: ASTHMA
     Dosage: 10 MG, UNK
     Route: 048
     Dates: start: 201709, end: 201710

REACTIONS (1)
  - Emphysema [Unknown]
